FAERS Safety Report 5480235-X (Version None)
Quarter: 2007Q4

REPORT INFORMATION
  Report Type: 
  Country: None (occurrence: None)
  Receive Date: 20071009
  Receipt Date: 20071001
  Transmission Date: 20080405
  Serious: Yes (Other)
  Sender: FDA-Public Use
  Company Number: US-ROCHE-509363

PATIENT
  Age: 54 Year
  Sex: Female

DRUGS (21)
  1. BONIVA [Suspect]
     Indication: OSTEOPOROSIS
     Route: 065
     Dates: start: 20070601
  2. NAPROSYN [Suspect]
     Route: 065
  3. CELEXA [Concomitant]
     Dosage: REPORTED AS: CELEXIA
  4. COUMADIN [Concomitant]
  5. FLEXERIL [Concomitant]
  6. FLORINEF [Concomitant]
  7. GLYBURIDE [Concomitant]
     Dosage: REPORTED AS; GLYBERIDE
  8. LASIX [Concomitant]
  9. LIBRAX [Concomitant]
  10. LIDODERM [Concomitant]
     Dosage: REPORTED AS: FIDODERM PATCHES
  11. LORCET [Concomitant]
     Dosage: REPORTED AS: LORISET 10
  12. MAXZIDE [Concomitant]
  13. METHADONE HCL [Concomitant]
  14. METOLAZONE [Concomitant]
  15. NEURONTIN [Concomitant]
  16. NIFEDIPINE [Concomitant]
  17. POTASSIUM CL [Concomitant]
  18. PREDNISONE [Concomitant]
  19. XANAX [Concomitant]
  20. ZETIA [Concomitant]
  21. CLEOCIN HYDROCHLORIDE [Concomitant]

REACTIONS (2)
  - RIB FRACTURE [None]
  - SPINAL FRACTURE [None]
